FAERS Safety Report 10465822 (Version 1)
Quarter: 2014Q3

REPORT INFORMATION
  Report Type: Spontaneous
  Country: DE (occurrence: DE)
  Receive Date: 20140921
  Receipt Date: 20140921
  Transmission Date: 20150326
  Serious: Yes (Hospitalization, Other)
  Sender: FDA-Public Use
  Company Number: PHHY2014DE119067

PATIENT
  Age: 63 Year
  Sex: Female
  Weight: 72 kg

DRUGS (5)
  1. RAMIPRIL. [Suspect]
     Active Substance: RAMIPRIL
     Dosage: 2.5 MG, UNK
     Route: 048
     Dates: start: 2008
  2. ANASTROZOLE. [Interacting]
     Active Substance: ANASTROZOLE
     Indication: BREAST CANCER
     Dosage: 1 MG, UNK
     Route: 048
     Dates: start: 2006
  3. VITAMIN D3 [Interacting]
     Active Substance: CHOLECALCIFEROL
     Route: 048
     Dates: start: 201002
  4. TEA, GREEN [Interacting]
     Active Substance: GREEN TEA LEAF
     Indication: BREAST CANCER
     Dosage: 1 DF, PER DAY
     Route: 048
     Dates: start: 20101221
  5. OXYBUTYNINE HCL [Interacting]
     Active Substance: OXYBUTYNIN\OXYBUTYNIN CHLORIDE
     Dosage: 5 MG, UNK
     Route: 048

REACTIONS (13)
  - Aspartate aminotransferase increased [Recovered/Resolved]
  - Blood bilirubin increased [Recovered/Resolved]
  - Jaundice [Recovered/Resolved]
  - Chromaturia [Unknown]
  - Alanine aminotransferase increased [Recovered/Resolved]
  - Hepatocellular injury [Recovered/Resolved]
  - Pruritus [Unknown]
  - Faeces discoloured [Unknown]
  - Gamma-glutamyltransferase increased [Recovered/Resolved]
  - Blood alkaline phosphatase increased [Recovered/Resolved]
  - Fatigue [Unknown]
  - Hepatitis acute [Recovered/Resolved]
  - Drug interaction [Unknown]
